FAERS Safety Report 23723161 (Version 1)
Quarter: 2024Q2

REPORT INFORMATION
  Report Type: Spontaneous
  Country: US (occurrence: US)
  Receive Date: 20240409
  Receipt Date: 20240409
  Transmission Date: 20240716
  Serious: No
  Sender: FDA-Public Use
  Company Number: US-MYLANLABS-2024M1026368

PATIENT
  Sex: Female
  Weight: 53.52 kg

DRUGS (1)
  1. CLONIDINE TRANSDERMAL SYSTEM [Suspect]
     Active Substance: CLONIDINE
     Indication: Blood pressure abnormal
     Dosage: UNK (ONE PATCH EVERY WEEK, EVERY FRIDAY)
     Route: 065

REACTIONS (2)
  - Incorrect dose administered by device [Unknown]
  - Device issue [Unknown]
